FAERS Safety Report 5226105-3 (Version None)
Quarter: 2007Q1

REPORT INFORMATION
  Report Type: 
  Country: None (occurrence: None)
  Receive Date: 20070201
  Receipt Date: 20070130
  Transmission Date: 20070707
  Serious: Yes (Other)
  Sender: FDA-Public Use
  Company Number: US-GLAXOSMITHKLINE-A0631608A

PATIENT
  Age: 29 Year
  Sex: Female

DRUGS (3)
  1. PAXIL [Suspect]
     Indication: IRRITABLE BOWEL SYNDROME
     Dosage: 10MG PER DAY
     Route: 048
     Dates: start: 20010101, end: 20061101
  2. BIRTH CONTROL PILL [Concomitant]
  3. SYNTHROID [Concomitant]

REACTIONS (14)
  - ABNORMAL DREAMS [None]
  - BALANCE DISORDER [None]
  - DIZZINESS [None]
  - DRUG WITHDRAWAL SYNDROME [None]
  - FOOD AVERSION [None]
  - HALLUCINATION [None]
  - HYPOTHYROIDISM [None]
  - INSOMNIA [None]
  - NAUSEA [None]
  - PHOTOPHOBIA [None]
  - REGURGITATION [None]
  - TACHYCARDIA [None]
  - VISION BLURRED [None]
  - VOMITING [None]
